FAERS Safety Report 23416325 (Version 3)
Quarter: 2024Q1

REPORT INFORMATION
  Report Type: Spontaneous
  Country: PT (occurrence: PT)
  Receive Date: 20240118
  Receipt Date: 20240226
  Transmission Date: 20240410
  Serious: Yes (Other)
  Sender: FDA-Public Use
  Company Number: PT-SA-SAC20240117000703

PATIENT
  Age: 45 Year
  Sex: Female

DRUGS (8)
  1. DUPILUMAB [Suspect]
     Active Substance: DUPILUMAB
     Indication: Chronic rhinosinusitis with nasal polyps
     Dosage: 300 MG, QOW
     Route: 065
     Dates: start: 20220608
  2. FLUTICASONE FUROATE\VILANTEROL TRIFENATATE [Concomitant]
     Active Substance: FLUTICASONE FUROATE\VILANTEROL TRIFENATATE
     Dosage: 184 ?G + 22 ?G; 1X/DAY
     Route: 055
     Dates: start: 202202, end: 202312
  3. BUDESONIDE [Concomitant]
     Active Substance: BUDESONIDE
     Dosage: 100 UG/DOSE
     Route: 045
     Dates: start: 202202
  4. MONTELUKAST [Concomitant]
     Active Substance: MONTELUKAST SODIUM
     Dosage: UNK
     Dates: start: 201912
  5. SUCRALFATE [Concomitant]
     Active Substance: SUCRALFATE
     Dosage: 1G/5ML, 1+0+1, BID
  6. BILASTINE [Concomitant]
     Active Substance: BILASTINE
     Dosage: 20 MG, PRN(20 MG; IN SOS)
  7. BRONCHO VAXOM ADULT [Concomitant]
     Dosage: UNK
  8. ESOMEPRAZOLE [Concomitant]
     Active Substance: ESOMEPRAZOLE
     Dosage: 1 DF (IN FASTING)

REACTIONS (2)
  - Polychondritis [Not Recovered/Not Resolved]
  - Condition aggravated [Not Recovered/Not Resolved]

NARRATIVE: CASE EVENT DATE: 20230701
